FAERS Safety Report 8161112-2 (Version None)
Quarter: 2012Q1

REPORT INFORMATION
  Report Type: 
  Country: None (occurrence: None)
  Receive Date: 20120224
  Receipt Date: 20120218
  Transmission Date: 20120608
  Serious: No
  Sender: FDA-Public Use
  Company Number: US-PFIZER INC-2012045406

PATIENT
  Sex: Female

DRUGS (1)
  1. SUTENT [Suspect]
     Indication: RENAL CANCER
     Dosage: 37.5 MG (12.5 MG PLUS 25 MG), 1X/DAY
     Route: 048
     Dates: start: 20111003, end: 20120111

REACTIONS (2)
  - RENAL CANCER [None]
  - DISEASE PROGRESSION [None]
